FAERS Safety Report 13745696 (Version 2)
Quarter: 2017Q4

REPORT INFORMATION
  Report Type: Spontaneous
  Country: JP (occurrence: JP)
  Receive Date: 20170712
  Receipt Date: 20171005
  Transmission Date: 20180320
  Serious: Yes (Hospitalization, Other)
  Sender: FDA-Public Use
  Company Number: JP-BAYER-2017-126280

PATIENT
  Age: 79 Year
  Sex: Female
  Weight: 32 kg

DRUGS (6)
  1. REBAMIPIDE [Concomitant]
     Active Substance: REBAMIPIDE
     Indication: PROPHYLAXIS
     Dosage: DAILY DOSE 200 MG
     Route: 048
  2. LANSOPRAZOLE. [Concomitant]
     Active Substance: LANSOPRAZOLE
     Indication: PROPHYLAXIS
     Dosage: DAILY DOSE 15 MG
     Route: 048
  3. BAYASPIRIN 100 MG [Suspect]
     Active Substance: ASPIRIN
     Indication: CEREBRAL INFARCTION
     Dosage: DAILY DOSE 100 MG
     Route: 048
     Dates: start: 20170125
  4. CEROCRAL [Concomitant]
     Active Substance: IFENPRODIL
     Indication: CEREBRAL INFARCTION
     Dosage: DAILY DOSE 40 MG
     Route: 048
  5. BAYASPIRIN 100 MG [Suspect]
     Active Substance: ASPIRIN
     Indication: CEREBRAL INFARCTION
     Dosage: DAILY DOSE 100 MG
     Route: 048
  6. NORVASC [Concomitant]
     Active Substance: AMLODIPINE BESYLATE
     Indication: HYPERTENSION
     Dosage: DAILY DOSE 5 MG
     Route: 048

REACTIONS (5)
  - Faecaloma [None]
  - Haematochezia [Recovering/Resolving]
  - Large intestine erosion [None]
  - Rectal ulcer haemorrhage [Recovering/Resolving]
  - Dieulafoy^s vascular malformation [None]

NARRATIVE: CASE EVENT DATE: 20170120
